FAERS Safety Report 4799052-9 (Version None)
Quarter: 2005Q4

REPORT INFORMATION
  Report Type: 
  Country: None (occurrence: None)
  Receive Date: 20051013
  Receipt Date: 20050929
  Transmission Date: 20060501
  Serious: Yes (Other)
  Sender: FDA-Public Use
  Company Number: 2005-DE-04042GD

PATIENT
  Age: 59 Year
  Sex: Male

DRUGS (3)
  1. MORPHINE [Suspect]
     Indication: CHEST PAIN
     Dosage: IV
     Route: 042
  2. TENECTEPLASE (TENECTEPLASE) [Suspect]
     Indication: ACUTE MYOCARDIAL INFARCTION
  3. HEPARIN [Suspect]
     Indication: ACUTE MYOCARDIAL INFARCTION
     Dosage: IV
     Route: 042

REACTIONS (6)
  - ACUTE MYOCARDIAL INFARCTION [None]
  - ARTERIAL DISORDER [None]
  - SINUS TACHYCARDIA [None]
  - THERAPY NON-RESPONDER [None]
  - VENTRICULAR EXTRASYSTOLES [None]
  - VENTRICULAR FIBRILLATION [None]
